FAERS Safety Report 18661186 (Version 1)
Quarter: 2020Q4

REPORT INFORMATION
  Report Type: Spontaneous
  Country: US (occurrence: US)
  Receive Date: 20201224
  Receipt Date: 20201224
  Transmission Date: 20210114
  Serious: Yes (Hospitalization, Other)
  Sender: FDA-Public Use
  Company Number: US-MSNLABS-2020MSNLIT00454

PATIENT

DRUGS (10)
  1. PIPERACILLIN AND TAZOBACTAM [Interacting]
     Active Substance: PIPERACILLIN SODIUM\TAZOBACTAM SODIUM
     Indication: PATHOGEN RESISTANCE
     Route: 065
  2. CEFTRIAXONE. [Interacting]
     Active Substance: CEFTRIAXONE
     Indication: OSTEOMYELITIS
     Route: 042
  3. CEFEPIME [Interacting]
     Active Substance: CEFEPIME HYDROCHLORIDE
     Indication: BACTERAEMIA
     Route: 065
  4. VANCOMYCIN [Interacting]
     Active Substance: VANCOMYCIN
     Dosage: MAINTENANCE DOSE
     Route: 065
  5. CEFTRIAXONE. [Interacting]
     Active Substance: CEFTRIAXONE
     Indication: DIABETIC FOOT
     Route: 042
  6. VANCOMYCIN [Interacting]
     Active Substance: VANCOMYCIN
     Indication: INFECTION
     Dosage: LOADING DOSE
     Route: 065
  7. CAPECITABINE TABLETS 500 MG [Suspect]
     Active Substance: CAPECITABINE
     Indication: RECTAL CANCER
     Route: 065
  8. METRONIDAZOLE. [Interacting]
     Active Substance: METRONIDAZOLE
     Route: 048
  9. CEFTRIAXONE. [Interacting]
     Active Substance: CEFTRIAXONE
     Indication: STAPHYLOCOCCAL INFECTION
     Route: 042
  10. METRONIDAZOLE. [Interacting]
     Active Substance: METRONIDAZOLE
     Indication: BACTERAEMIA
     Route: 042

REACTIONS (2)
  - Bacteraemia [None]
  - Osteomyelitis [None]
